FAERS Safety Report 10381004 (Version 1)
Quarter: 2014Q3

REPORT INFORMATION
  Report Type: Spontaneous
  Country: US (occurrence: None)
  Receive Date: 20140808
  Receipt Date: 20140808
  Transmission Date: 20150326
  Serious: Yes (Other)
  Sender: FDA-Public Use
  Company Number: 2014/056

PATIENT
  Age: 16 Year
  Sex: Female
  Weight: 71 kg

DRUGS (1)
  1. LEVETIRACETAM. [Suspect]
     Active Substance: LEVETIRACETAM
     Indication: EPILEPSY

REACTIONS (4)
  - Maternal exposure during pregnancy [None]
  - Convulsion [None]
  - Drug clearance increased [None]
  - No therapeutic response [None]
